FAERS Safety Report 20189940 (Version 1)
Quarter: 2021Q4

REPORT INFORMATION
  Report Type: Spontaneous
  Country: US (occurrence: None)
  Receive Date: 20211215
  Receipt Date: 20211215
  Transmission Date: 20220303
  Serious: No
  Sender: FDA-Public Use
  Company Number: None

PATIENT
  Age: 54 Year
  Sex: Female
  Weight: 87 kg

DRUGS (2)
  1. BAMLANIVIMAB [Suspect]
     Active Substance: BAMLANIVIMAB
     Route: 042
     Dates: start: 20211214, end: 20211214
  2. ETESEVIMAB [Suspect]
     Active Substance: ETESEVIMAB
     Indication: COVID-19
     Route: 042
     Dates: start: 20211214, end: 20211214

REACTIONS (3)
  - Nausea [None]
  - Hyperhidrosis [None]
  - Blood pressure systolic decreased [None]

NARRATIVE: CASE EVENT DATE: 20211214
